FAERS Safety Report 8144628-4 (Version None)
Quarter: 2012Q1

REPORT INFORMATION
  Report Type: 
  Country: None (occurrence: None)
  Receive Date: 20120217
  Receipt Date: 20120208
  Transmission Date: 20120608
  Serious: Yes (Hospitalization)
  Sender: FDA-Public Use
  Company Number: US-JNJFOC-20120109251

PATIENT
  Sex: Female
  Weight: 32.5 kg

DRUGS (7)
  1. REMICADE [Suspect]
     Indication: COLITIS ULCERATIVE
     Route: 042
     Dates: start: 20111208
  2. URSODIOL [Concomitant]
  3. PREDNISONE [Concomitant]
  4. PROBIOTIC [Concomitant]
  5. REMICADE [Suspect]
     Route: 042
     Dates: start: 20111222
  6. MULTIPLE VITAMIN [Concomitant]
  7. REMICADE [Suspect]
     Route: 042
     Dates: start: 20120116

REACTIONS (1)
  - COLITIS ULCERATIVE [None]
